FAERS Safety Report 23647539 (Version 1)
Quarter: 2024Q1

REPORT INFORMATION
  Report Type: Report from Study
  Country: US (occurrence: US)
  Receive Date: 20240319
  Receipt Date: 20240319
  Transmission Date: 20240409
  Serious: Yes (Hospitalization)
  Sender: FDA-Public Use
  Company Number: US-MYLANLABS-2024M1024008

PATIENT
  Age: 99 Year
  Sex: Female

DRUGS (1)
  1. LYRICA [Suspect]
     Active Substance: PREGABALIN
     Indication: Product used for unknown indication
     Dosage: 150 MILLIGRAM, BID
     Route: 065

REACTIONS (9)
  - Vomiting [Unknown]
  - Dehydration [Unknown]
  - Diarrhoea [Unknown]
  - Panic attack [Unknown]
  - Burning sensation [Unknown]
  - Withdrawal syndrome [Unknown]
  - Illness [Unknown]
  - Hyperhidrosis [Unknown]
  - Treatment noncompliance [Unknown]
